FAERS Safety Report 5622612-X (Version None)
Quarter: 2008Q1

REPORT INFORMATION
  Report Type: 
  Country: None (occurrence: None)
  Receive Date: 20080211
  Receipt Date: 20080211
  Transmission Date: 20080703
  Serious: No
  Sender: FDA-Public Use
  Company Number: None

PATIENT
  Age: 78 Year
  Sex: Male

DRUGS (1)
  1. VANCOMYCIN [Suspect]
     Dosage: 1GM BID IV
     Route: 042
     Dates: start: 20071108, end: 20071112

REACTIONS (2)
  - OEDEMA [None]
  - RASH [None]
